FAERS Safety Report 8908721 (Version 1)
Quarter: 2012Q4

REPORT INFORMATION
  Report Type: 
  Country: US (occurrence: US)
  Receive Date: 20121113
  Receipt Date: 20121113
  Transmission Date: 20130627
  Serious: No
  Sender: FDA-Public Use
  Company Number: US-AMGEN-USASP2012011916

PATIENT
  Age: 53 Year
  Sex: Female
  Weight: 58.96 kg

DRUGS (9)
  1. ENBREL [Suspect]
     Indication: PRODUCT USED FOR UNKNOWN INDICATION
     Dosage: 50 mg, qwk
     Route: 058
  2. METHOTREXATE [Concomitant]
     Dosage: 2.5 mg, UNK
  3. FOLIC ACID [Concomitant]
     Dosage: UNK
  4. FISH OIL [Concomitant]
     Dosage: UNK
  5. VITAMIN D /00107901/ [Concomitant]
     Dosage: UNK
  6. B COMPLEX                          /06817001/ [Concomitant]
     Dosage: UNK
  7. MULTIVITAMIN                       /00831701/ [Concomitant]
     Dosage: UNK
  8. CALCIUM D                          /01483701/ [Concomitant]
     Dosage: UNK
  9. FLAXSEED OIL [Concomitant]
     Dosage: UNK

REACTIONS (3)
  - Injection site swelling [Not Recovered/Not Resolved]
  - Injection site erythema [Not Recovered/Not Resolved]
  - Injection site pruritus [Not Recovered/Not Resolved]
